FAERS Safety Report 5201279-9 (Version None)
Quarter: 2007Q1

REPORT INFORMATION
  Report Type: 
  Country: None (occurrence: None)
  Receive Date: 20070103
  Receipt Date: 20061219
  Transmission Date: 20070707
  Serious: Yes (Hospitalization)
  Sender: FDA-Public Use
  Company Number: 2006-03247

PATIENT
  Age: 41 Year
  Sex: Male
  Weight: 69 kg

DRUGS (8)
  1. VELCADE [Suspect]
     Indication: T-CELL LYMPHOMA
     Dosage: 2.81 MG, INTRAVENOUS
     Route: 042
     Dates: start: 20061117, end: 20061121
  2. CYCLOPHOSPHAMIDE [Suspect]
     Indication: T-CELL LYMPHOMA
     Dosage: 2240.00 MG, INTRAVENOUS
     Route: 042
     Dates: start: 20061117, end: 20061117
  3. DOXORUBICIN HCL [Suspect]
     Indication: T-CELL LYMPHOMA
     Dosage: 140.30 MG, INTRAVENOUS
     Route: 042
     Dates: start: 20061117, end: 20061117
  4. ELDISINE [Suspect]
     Indication: T-CELL LYMPHOMA
     Dosage: 3.74 MG, INTRAVENOUS
     Route: 042
     Dates: start: 20061117, end: 20061121
  5. BLEOMYCIN [Suspect]
     Indication: T-CELL LYMPHOMA
     Dosage: 10.00 MG, INTRAVENOUS
     Route: 042
     Dates: start: 20061117, end: 20061121
  6. METHOTREXATE [Suspect]
     Indication: T-CELL LYMPHOMA
     Dosage: 15.00 MG, INTRATHECAL
     Route: 037
     Dates: start: 20061118, end: 20061118
  7. PREDNISONE [Suspect]
     Indication: T-CELL LYMPHOMA
     Dosage: 112.00 MG, ORAL
     Route: 048
     Dates: start: 20061117, end: 20061121
  8. BACTRIM [Concomitant]

REACTIONS (1)
  - PNEUMOCYSTIS JIROVECI PNEUMONIA [None]
